FAERS Safety Report 4450193-5 (Version None)
Quarter: 2004Q3

REPORT INFORMATION
  Report Type: 
  Country: None (occurrence: None)
  Receive Date: 20040914
  Receipt Date: 20040831
  Transmission Date: 20050211
  Serious: Yes (Hospitalization)
  Sender: FDA-Public Use
  Company Number: 04P-167-0270232-00

PATIENT
  Age: 61 Year
  Sex: Male
  Weight: 80 kg

DRUGS (11)
  1. HUMIRA [Suspect]
     Indication: RHEUMATOID ARTHRITIS
     Dosage: 40 MG, 1 IN 2 WK, SUBCUTANEOUS
     Route: 058
     Dates: start: 20040119
  2. METHOTREXATE [Concomitant]
  3. FOLIC ACID [Concomitant]
  4. SULFASALAZINE [Concomitant]
  5. HYDROXYCHLOROQUINE SULFATE [Concomitant]
  6. FERROUS GLUCONATE [Concomitant]
  7. VALSARTAN [Concomitant]
  8. LANSOPRAZOLE [Concomitant]
  9. ROFECOXIB [Concomitant]
  10. ACETAMINOPHEN AND CODEINE PHOSPHATE [Concomitant]
  11. CARBAZOCHROME [Concomitant]

REACTIONS (1)
  - URINARY RETENTION [None]
